FAERS Safety Report 6400927-5 (Version None)
Quarter: 2009Q4

REPORT INFORMATION
  Report Type: 
  Country: None (occurrence: None)
  Receive Date: 20091009
  Receipt Date: 20090930
  Transmission Date: 20100525
  Serious: Yes (Other)
  Sender: FDA-Public Use
  Company Number: AVE_00938_2009

PATIENT
  Sex: Female
  Weight: 145 kg

DRUGS (5)
  1. CLONIDINE [Suspect]
     Indication: BLOOD PRESSURE INCREASED
     Dosage: 0.3 MG QD, VIA 1/WEEKLY PATCH TRANSDERMAL
     Route: 062
     Dates: start: 20090921
  2. LEVOXYL [Concomitant]
  3. VICODIN [Concomitant]
  4. ONDANSETRON [Concomitant]
  5. KLONOPIN [Concomitant]

REACTIONS (3)
  - BLOOD PRESSURE INCREASED [None]
  - HEADACHE [None]
  - PRODUCT ADHESION ISSUE [None]
